FAERS Safety Report 9696208 (Version 1)
Quarter: 2013Q4

REPORT INFORMATION
  Report Type: Spontaneous
  Country: AR (occurrence: AR)
  Receive Date: 20131119
  Receipt Date: 20131119
  Transmission Date: 20140711
  Serious: Yes (Other)
  Sender: FDA-Public Use
  Company Number: PHHY2013AR132064

PATIENT
  Sex: Female

DRUGS (1)
  1. TEGRETOL [Suspect]
     Indication: TRIGEMINAL NERVE DISORDER
     Dosage: 200 MG, BID
     Route: 048
     Dates: start: 2011

REACTIONS (3)
  - Visual impairment [Unknown]
  - Fall [Recovering/Resolving]
  - Muscular weakness [Recovering/Resolving]
